FAERS Safety Report 4442181-X (Version None)
Quarter: 2004Q3

REPORT INFORMATION
  Report Type: 
  Country: None (occurrence: None)
  Receive Date: 20040901
  Receipt Date: 20040820
  Transmission Date: 20050211
  Serious: Yes (Other)
  Sender: FDA-Public Use
  Company Number: DE-2004-030678

PATIENT
  Sex: Female

DRUGS (3)
  1. MAGNEVIST [Suspect]
     Dosage: 14 ML, 1 DOSE, INTRACEREBRAL
  2. SODIUM CHLORIDE 0.9% [Suspect]
     Dosage: 14 ML, INTRACEREBRAL
     Dates: start: 20040818, end: 20040818
  3. SODIUM CHLORIDE 0.9% [Suspect]

REACTIONS (7)
  - ACCIDENTAL EXPOSURE [None]
  - APATHY [None]
  - APHASIA [None]
  - BRAIN OEDEMA [None]
  - CONDITION AGGRAVATED [None]
  - DISORIENTATION [None]
  - MEDICATION ERROR [None]
